FAERS Safety Report 4647829-2 (Version None)
Quarter: 2005Q2

REPORT INFORMATION
  Report Type: 
  Country: None (occurrence: None)
  Receive Date: 20050428
  Receipt Date: 20050425
  Transmission Date: 20051028
  Serious: Yes (Other)
  Sender: FDA-Public Use
  Company Number: US-GLAXOSMITHKLINE-A0555862A

PATIENT
  Sex: Female

DRUGS (2)
  1. CARVEDILOL [Suspect]
     Route: 048
  2. NAVANE [Concomitant]

REACTIONS (1)
  - PSYCHOTIC DISORDER [None]
